FAERS Safety Report 20868208 (Version 1)
Quarter: 2022Q2

REPORT INFORMATION
  Report Type: Spontaneous
  Country: US (occurrence: None)
  Receive Date: 20220524
  Receipt Date: 20220524
  Transmission Date: 20220720
  Serious: No
  Sender: FDA-Public Use
  Company Number: None

PATIENT
  Age: 62 Year
  Sex: Male
  Weight: 83.25 kg

DRUGS (4)
  1. PAXLOVID [Suspect]
     Active Substance: NIRMATRELVIR\RITONAVIR
     Indication: COVID-19
     Dosage: 300MG TWICE A DAY ORAL
     Route: 048
     Dates: start: 20220519, end: 20220523
  2. ACETAMINOPHEN [Concomitant]
     Active Substance: ACETAMINOPHEN
     Dates: start: 20220517
  3. IBUPROFEN [Concomitant]
     Active Substance: IBUPROFEN
     Dates: start: 20220517
  4. joint supplements [Concomitant]
     Dates: start: 20200501

REACTIONS (2)
  - Rash maculo-papular [None]
  - Rash pruritic [None]

NARRATIVE: CASE EVENT DATE: 20220523
